FAERS Safety Report 20975798 (Version 1)
Quarter: 2022Q2

REPORT INFORMATION
  Report Type: Spontaneous
  Country: ES (occurrence: ES)
  Receive Date: 20220617
  Receipt Date: 20220617
  Transmission Date: 20220720
  Serious: Yes (Other)
  Sender: FDA-Public Use
  Company Number: None

PATIENT
  Age: 57 Year
  Sex: Male

DRUGS (3)
  1. PRISTIQ EXTENDED-RELEASE [Suspect]
     Active Substance: DESVENLAFAXINE SUCCINATE
     Indication: Anxiety
     Dosage: 50 MG, 1X/DAY (1.0 CAPS A-DE)
     Dates: start: 20220527
  2. LIMOVAN [ZOPICLONE] [Concomitant]
     Indication: Anxiety
     Dosage: 7.5 MG, 1X/DAY (7.5 MG C/24 H NOC)
     Route: 048
     Dates: start: 20210330
  3. RIVOTRIL [Concomitant]
     Active Substance: CLONAZEPAM
     Indication: Drug abuse
     Dosage: UNK, 1X/DAY (2.5 MG/ML (1.0 MG DECE))
     Route: 048
     Dates: start: 20220526

REACTIONS (2)
  - Delirium [Recovering/Resolving]
  - Testicular pain [Recovering/Resolving]

NARRATIVE: CASE EVENT DATE: 20220527
